FAERS Safety Report 19874590 (Version 1)
Quarter: 2021Q3

REPORT INFORMATION
  Report Type: Spontaneous
  Country: US (occurrence: US)
  Receive Date: 20210923
  Receipt Date: 20210923
  Transmission Date: 20211014
  Serious: Yes (Other)
  Sender: FDA-Public Use
  Company Number: US-GILEAD-2021-0549320

PATIENT

DRUGS (1)
  1. ATRIPLA [Suspect]
     Active Substance: EFAVIRENZ\EMTRICITABINE\TENOFOVIR DISOPROXIL FUMARATE
     Indication: PRODUCT USED FOR UNKNOWN INDICATION
     Dosage: UNK
     Route: 048
     Dates: start: 20100512, end: 20151117

REACTIONS (9)
  - Bone density decreased [Unknown]
  - Fracture nonunion [Unknown]
  - Multiple fractures [Unknown]
  - Fracture infection [Unknown]
  - Abscess limb [Unknown]
  - Bone loss [Unknown]
  - Haematoma [Unknown]
  - Osteonecrosis [Unknown]
  - Osteomyelitis [Unknown]
